FAERS Safety Report 8059854-2 (Version None)
Quarter: 2012Q1

REPORT INFORMATION
  Report Type: 
  Country: None (occurrence: None)
  Receive Date: 20120120
  Receipt Date: 20120111
  Transmission Date: 20120608
  Serious: Yes (Other)
  Sender: FDA-Public Use
  Company Number: US-ELI_LILLY_AND_COMPANY-US201201003720

PATIENT
  Sex: Male

DRUGS (3)
  1. ALIMTA [Suspect]
     Dosage: 800 MG, UNKNOWN
     Route: 042
  2. BENADRYL [Concomitant]
     Dosage: UNK, UNKNOWN
  3. ALIMTA [Suspect]
     Dosage: 800 MG, UNKNOWN
     Route: 042
     Dates: start: 20111201

REACTIONS (5)
  - HYPERHIDROSIS [None]
  - NAUSEA [None]
  - ASPIRATION PLEURAL CAVITY [None]
  - HYPOTENSION [None]
  - ADVERSE REACTION [None]
